FAERS Safety Report 14556402 (Version 1)
Quarter: 2018Q1

REPORT INFORMATION
  Report Type: Report from Study
  Country: US (occurrence: US)
  Receive Date: 20180221
  Receipt Date: 20180221
  Transmission Date: 20180509
  Serious: Yes (Other)
  Sender: FDA-Public Use
  Company Number: US-GILEAD-2018-0317322

PATIENT
  Age: 76 Year
  Sex: Female
  Weight: 46 kg

DRUGS (23)
  1. AMBRISENTAN [Suspect]
     Active Substance: AMBRISENTAN
     Indication: PULMONARY HYPERTENSION
     Dosage: 10 MG, QD
     Route: 048
     Dates: start: 20180122
  2. TYVASO [Concomitant]
     Active Substance: TREPROSTINIL
  3. ROPINIROLE. [Concomitant]
     Active Substance: ROPINIROLE
  4. SPIRONOLACTONE. [Concomitant]
     Active Substance: SPIRONOLACTONE
  5. AMITRIPTYLINE [Concomitant]
     Active Substance: AMITRIPTYLINE
  6. CRESTOR [Concomitant]
     Active Substance: ROSUVASTATIN CALCIUM
  7. FISH OIL [Concomitant]
     Active Substance: FISH OIL
  8. VERAPAMIL [Concomitant]
     Active Substance: VERAPAMIL HYDROCHLORIDE
  9. GLIMEPIRIDE. [Concomitant]
     Active Substance: GLIMEPIRIDE
  10. SYNTHROID [Concomitant]
     Active Substance: LEVOTHYROXINE SODIUM
  11. GENTEAL                            /00445101/ [Concomitant]
     Active Substance: HYPROMELLOSE 2910 (4000 MPA.S)
  12. NEXIUM [Concomitant]
     Active Substance: ESOMEPRAZOLE MAGNESIUM
  13. ALLOPURINOL. [Concomitant]
     Active Substance: ALLOPURINOL
  14. B-COMPLEX                          /00003501/ [Concomitant]
     Active Substance: CYANOCOBALAMIN\DEXPANTHENOL\NIACINAMIDE\PYRIDOXINE HYDROCHLORIDE\RIBOFLAVIN 5^-PHOSPHATE SODIUM\THIAMINE HYDROCHLORIDE\VITAMIN B COMPLEX
  15. CALCIUM CARBONATE. [Concomitant]
     Active Substance: CALCIUM CARBONATE
  16. BION TEARS [Concomitant]
     Active Substance: DEXTRAN 70\HYPROMELLOSE 2910 (4000 MPA.S)
  17. DIGOXIN. [Concomitant]
     Active Substance: DIGOXIN
  18. HYDROCODONE [Concomitant]
     Active Substance: HYDROCODONE
  19. PREDNISONE. [Concomitant]
     Active Substance: PREDNISONE
  20. AMBRISENTAN [Suspect]
     Active Substance: AMBRISENTAN
     Indication: SCLERODERMA
  21. ALENDRONATE [Concomitant]
     Active Substance: ALENDRONATE SODIUM
  22. MICROLET                           /00861601/ [Concomitant]
  23. NITRO-BID [Concomitant]
     Active Substance: NITROGLYCERIN

REACTIONS (4)
  - Anaemia [Not Recovered/Not Resolved]
  - Alopecia [Unknown]
  - Gastrointestinal arteriovenous malformation [Not Recovered/Not Resolved]
  - Gastrooesophageal reflux disease [Unknown]
